FAERS Safety Report 8506863-2 (Version None)
Quarter: 2012Q3

REPORT INFORMATION
  Report Type: 
  Country: None (occurrence: None)
  Receive Date: 20120712
  Receipt Date: 20120703
  Transmission Date: 20120928
  Serious: No
  Sender: FDA-Public Use
  Company Number: US-PFIZER INC-2012160407

PATIENT
  Sex: Female
  Weight: 70.748 kg

DRUGS (2)
  1. EXEMESTANE [Suspect]
     Indication: ADJUVANT THERAPY
     Dosage: UNK
     Dates: start: 20110101, end: 20111001
  2. LOSARTAN [Concomitant]
     Indication: HYPERTENSION
     Dosage: UNK

REACTIONS (4)
  - CHILLS [None]
  - HYPOAESTHESIA [None]
  - ARTHROPATHY [None]
  - TRIGGER FINGER [None]
